FAERS Safety Report 8081670-6 (Version None)
Quarter: 2012Q1

REPORT INFORMATION
  Report Type: 
  Country: None (occurrence: None)
  Receive Date: 20120130
  Receipt Date: 20120124
  Transmission Date: 20120608
  Serious: No
  Sender: FDA-Public Use
  Company Number: US-B.I. PHARMACEUTICALS,INC./RIDGEFIELD-2012-BP-01593BP

PATIENT
  Sex: Male

DRUGS (5)
  1. CLARITIN-D [Concomitant]
  2. FLOMAX [Suspect]
     Route: 048
  3. NOVOLIN 70/30 [Concomitant]
  4. FEXOFENADINE HYDROCHLORIDE AND PSEUDOEPHEDRINE HYDROCHLORIDE [Suspect]
     Indication: HYPERSENSITIVITY
     Dosage: 180 MG
     Route: 048
     Dates: start: 20111212
  5. SIMVASTATIN [Concomitant]

REACTIONS (3)
  - MALAISE [None]
  - DIZZINESS [None]
  - INJECTION SITE PAIN [None]
